FAERS Safety Report 15152287 (Version 2)
Quarter: 2018Q3

REPORT INFORMATION
  Report Type: Spontaneous
  Country: BE (occurrence: BE)
  Receive Date: 20180717
  Receipt Date: 20180723
  Transmission Date: 20181010
  Serious: Yes (Hospitalization)
  Sender: FDA-Public Use
  Company Number: BE-TEVA-2018-BE-923500

PATIENT
  Age: 42 Year
  Sex: Male
  Weight: 98 kg

DRUGS (2)
  1. CETIRIZIN [Suspect]
     Active Substance: CETIRIZINE HYDROCHLORIDE
     Dosage: 10 MILLIGRAM DAILY;
     Route: 048
     Dates: start: 20180201, end: 20180426
  2. AMG820 [Concomitant]
     Route: 042
     Dates: start: 20180111, end: 20180426

REACTIONS (2)
  - Epilepsy [Recovered/Resolved]
  - Tonic clonic movements [Recovered/Resolved]

NARRATIVE: CASE EVENT DATE: 20180426
